FAERS Safety Report 25660402 (Version 1)
Quarter: 2025Q3

REPORT INFORMATION
  Report Type: Spontaneous
  Country: US (occurrence: None)
  Receive Date: 20250808
  Receipt Date: 20250808
  Transmission Date: 20251021
  Serious: Yes (Hospitalization)
  Sender: FDA-CTU
  Company Number: None

PATIENT
  Sex: Female

DRUGS (2)
  1. TREMFYA [Suspect]
     Active Substance: GUSELKUMAB
     Indication: Colitis ulcerative
     Dosage: FREQUENCY : MONTHLY;?
     Route: 058
     Dates: start: 20250807
  2. BENADRYL CAP [Concomitant]

REACTIONS (3)
  - Quality of life decreased [None]
  - Colitis ulcerative [None]
  - Condition aggravated [None]
